FAERS Safety Report 7815574-8 (Version None)
Quarter: 2011Q4

REPORT INFORMATION
  Report Type: 
  Country: None (occurrence: None)
  Receive Date: 20111012
  Receipt Date: 20110913
  Transmission Date: 20120403
  Serious: Yes (Hospitalization, Disabling)
  Sender: FDA-Public Use
  Company Number: VISP-NO-1110S-0408

PATIENT
  Age: 63 Year
  Sex: Female

DRUGS (1)
  1. VISIPAQUE [Suspect]
     Indication: CEREBRAL ARTERY OCCLUSION
     Dosage: 300 ML, SINGLE DOSE
     Dates: start: 20110802, end: 20110802

REACTIONS (6)
  - BRAIN OEDEMA [None]
  - GRAND MAL CONVULSION [None]
  - ALTERED STATE OF CONSCIOUSNESS [None]
  - ISCHAEMIC CEREBRAL INFARCTION [None]
  - HEMIPARESIS [None]
  - PYREXIA [None]
